FAERS Safety Report 13913737 (Version 1)
Quarter: 2017Q3

REPORT INFORMATION
  Report Type: Spontaneous
  Country: US (occurrence: US)
  Receive Date: 20170828
  Receipt Date: 20170828
  Transmission Date: 20171127
  Serious: No
  Sender: FDA-Public Use
  Company Number: US-ROCHE-1138123

PATIENT
  Age: 2 Year
  Sex: Female
  Weight: 9.1 kg

DRUGS (3)
  1. NUTROPIN [Suspect]
     Active Substance: SOMATROPIN
     Indication: TURNER^S SYNDROME
     Route: 058
     Dates: start: 199910
  2. SULFA NOS [Concomitant]
     Indication: PROPHYLAXIS
  3. AMOXICILLINE [Concomitant]
     Active Substance: AMOXICILLIN

REACTIONS (6)
  - Oedema peripheral [Unknown]
  - Diarrhoea [Unknown]
  - Pharyngitis streptococcal [Unknown]
  - Skin wrinkling [Unknown]
  - Seborrhoea [Unknown]
  - Therapeutic response decreased [Unknown]

NARRATIVE: CASE EVENT DATE: 20000714
